FAERS Safety Report 11038099 (Version 1)
Quarter: 2015Q2

REPORT INFORMATION
  Report Type: Spontaneous
  Country: ES (occurrence: ES)
  Receive Date: 20150416
  Receipt Date: 20150416
  Transmission Date: 20150821
  Serious: Yes (Death, Other)
  Sender: FDA-Public Use
  Company Number: ES-SA-2015SA045155

PATIENT
  Age: 81 Year
  Sex: Male

DRUGS (7)
  1. PARACETAMOL [Concomitant]
     Active Substance: ACETAMINOPHEN
     Indication: DEEP VEIN THROMBOSIS
     Route: 048
     Dates: start: 20131211, end: 20140114
  2. PREDNISONE. [Concomitant]
     Active Substance: PREDNISONE
     Indication: POLYMYALGIA RHEUMATICA
     Route: 048
     Dates: start: 20130101, end: 20140114
  3. METRONIDAZOLE. [Concomitant]
     Active Substance: METRONIDAZOLE
     Indication: GASTROENTERITIS CLOSTRIDIAL
     Route: 048
     Dates: start: 20140113, end: 20140114
  4. CITALOPRAM [Concomitant]
     Active Substance: CITALOPRAM HYDROBROMIDE
     Indication: DEPRESSION
     Route: 048
     Dates: start: 20130101, end: 20140114
  5. CLEXANE [Suspect]
     Active Substance: ENOXAPARIN SODIUM
     Indication: DEEP VEIN THROMBOSIS
     Route: 065
     Dates: end: 20150114
  6. SERETIDE [Concomitant]
     Active Substance: FLUTICASONE FUROATE\SALMETEROL XINAFOATE
     Indication: DYSPNOEA
     Dosage: DOSE: 2/12 UNITS
     Route: 045
     Dates: start: 20130101, end: 20140114
  7. PARACETAMOL [Concomitant]
     Active Substance: ACETAMINOPHEN
     Indication: ANALGESIC THERAPY
     Route: 048
     Dates: start: 20131211, end: 20140114

REACTIONS (4)
  - Retroperitoneal haematoma [Recovered/Resolved]
  - Hypotension [Unknown]
  - Abdominal pain upper [Recovered/Resolved]
  - Hypovolaemic shock [Fatal]

NARRATIVE: CASE EVENT DATE: 20140114
